FAERS Safety Report 20720520 (Version 1)
Quarter: 2022Q2

REPORT INFORMATION
  Report Type: Spontaneous
  Country: US (occurrence: US)
  Receive Date: 20220418
  Receipt Date: 20220418
  Transmission Date: 20220721
  Serious: Yes (Death, Life-Threatening, Hospitalization, Other)
  Sender: FDA-Public Use
  Company Number: US-AMGEN-USASP2022062321

PATIENT

DRUGS (1)
  1. BEVACIZUMAB [Suspect]
     Active Substance: BEVACIZUMAB
     Indication: Ovarian cancer
     Dosage: UNK
     Route: 065

REACTIONS (8)
  - Ovarian cancer [Fatal]
  - Respiratory failure [Unknown]
  - Pelvic abscess [Unknown]
  - Fallopian tube cancer [Unknown]
  - Small intestinal obstruction [Unknown]
  - Ileus [Unknown]
  - Postoperative abscess [Unknown]
  - Wound infection [Unknown]
